FAERS Safety Report 9646897 (Version 1)
Quarter: 2013Q4

REPORT INFORMATION
  Report Type: Spontaneous
  Country: US (occurrence: US)
  Receive Date: 20131027
  Receipt Date: 20131027
  Transmission Date: 20140711
  Serious: Yes (Other)
  Sender: FDA-Public Use
  Company Number: US-NAPPMUNDI-USA-2013-0101873

PATIENT
  Age: 33 Year
  Sex: Male

DRUGS (2)
  1. OXYCODONE HYDROCHLORIDE (SIMILAR TO NDA 22-272) [Suspect]
     Indication: PAIN
     Dosage: UNKNOWN
     Route: 048
  2. SUBOXONE [Suspect]
     Indication: PAIN
     Dosage: UNKNOWN

REACTIONS (1)
  - Drug abuse [Unknown]
